FAERS Safety Report 20756629 (Version 1)
Quarter: 2022Q2

REPORT INFORMATION
  Report Type: Spontaneous
  Country: US (occurrence: US)
  Receive Date: 20220427
  Receipt Date: 20220427
  Transmission Date: 20220721
  Serious: Yes (Other)
  Sender: FDA-Public Use
  Company Number: US-MYLANLABS-2022M1030912

PATIENT
  Age: 54 Year
  Sex: Female

DRUGS (5)
  1. METHOTREXATE [Suspect]
     Active Substance: METHOTREXATE
     Indication: Fasciitis
     Dosage: 10 MILLIGRAM, QW
     Route: 065
  2. METHOTREXATE [Suspect]
     Active Substance: METHOTREXATE
     Indication: Myopathy
  3. ANASTROZOLE [Suspect]
     Active Substance: ANASTROZOLE
     Indication: Invasive lobular breast carcinoma
     Dosage: UNK
     Route: 065
     Dates: start: 201611, end: 201711
  4. EXEMESTANE [Suspect]
     Active Substance: EXEMESTANE
     Indication: Invasive lobular breast carcinoma
     Dosage: UNK
     Route: 065
     Dates: start: 201806, end: 202008
  5. TAMOXIFEN [Concomitant]
     Active Substance: TAMOXIFEN
     Indication: Invasive lobular breast carcinoma
     Dosage: UNK
     Route: 065
     Dates: start: 201304, end: 201611

REACTIONS (4)
  - Fasciitis [Recovering/Resolving]
  - Arthralgia [Unknown]
  - Myopathy [Recovering/Resolving]
  - Transaminases increased [Unknown]

NARRATIVE: CASE EVENT DATE: 20170601
